FAERS Safety Report 8488283-2 (Version None)
Quarter: 2012Q3

REPORT INFORMATION
  Report Type: 
  Country: None (occurrence: None)
  Receive Date: 20120705
  Receipt Date: 20120629
  Transmission Date: 20120928
  Serious: Yes (Hospitalization)
  Sender: FDA-Public Use
  Company Number: DE-PFIZER INC-2012156559

PATIENT
  Age: 33 Year
  Sex: Female
  Weight: 87 kg

DRUGS (4)
  1. JODETTEN [Concomitant]
     Indication: GOITRE
     Dosage: UNK
     Dates: start: 20030115
  2. BETAHISTINE [Concomitant]
     Indication: DIZZINESS
     Dosage: UNK
     Dates: start: 20030115
  3. GENOTROPIN [Suspect]
     Indication: HYPOPITUITARISM
     Dosage: 0.2 MG, 1X/DAY (7 INJECTIONS/WEEK)
     Dates: start: 20090722
  4. HYDROCORTISONE [Concomitant]
     Indication: BLOOD CORTICOTROPHIN DECREASED
     Dosage: UNK
     Route: 048
     Dates: start: 20100127

REACTIONS (1)
  - PITUITARY TUMOUR BENIGN [None]
